FAERS Safety Report 5356560-X (Version None)
Quarter: 2007Q2

REPORT INFORMATION
  Report Type: 
  Country: None (occurrence: None)
  Receive Date: 20070531
  Receipt Date: 20060412
  Transmission Date: 20071010
  Serious: Yes (Hospitalization)
  Sender: FDA-Public Use
  Company Number: 428956

PATIENT
  Age: 20 Year
  Sex: Female

DRUGS (2)
  1. LARIAM [Suspect]
     Indication: DRUG USE FOR UNKNOWN INDICATION
     Dosage: ORAL
     Route: 048
     Dates: start: 20050815, end: 20050815
  2. BIRTH CONTROL PILLS NOS (ORAL CONTRACEPTIVES NOS) [Concomitant]

REACTIONS (1)
  - PSYCHOTIC DISORDER [None]
